FAERS Safety Report 4798743-3 (Version None)
Quarter: 2005Q4

REPORT INFORMATION
  Report Type: 
  Country: None (occurrence: None)
  Receive Date: 20051014
  Receipt Date: 20051005
  Transmission Date: 20060501
  Serious: Yes (Hospitalization, Disabling)
  Sender: FDA-Public Use
  Company Number: US-MERCK-0510USA03355

PATIENT
  Age: 61 Year
  Sex: Female
  Weight: 91 kg

DRUGS (41)
  1. RHINOCORT [Concomitant]
     Route: 065
  2. AUGMENTIN '125' [Concomitant]
     Route: 065
  3. ROBITUSSIN [Concomitant]
     Route: 065
  4. BACTROBAN [Concomitant]
     Route: 065
  5. CYCLOBENZAPRINE HYDROCHLORIDE [Concomitant]
     Route: 065
  6. ASPIRIN [Concomitant]
     Route: 065
  7. PYRIDOXINE [Concomitant]
     Route: 065
  8. PROCARDIA XL [Concomitant]
     Route: 065
  9. LOTRISONE [Concomitant]
     Route: 065
  10. NIZORAL [Concomitant]
     Route: 065
  11. ZITHROMAX [Concomitant]
     Route: 065
  12. PRILOSEC [Concomitant]
     Route: 065
  13. SPECTAZOLE [Concomitant]
     Route: 065
  14. NASONEX [Concomitant]
     Route: 065
  15. FLONASE [Concomitant]
     Route: 065
  16. PLAVIX [Concomitant]
     Route: 065
  17. FOSAMAX [Concomitant]
     Route: 065
  18. LORCET-HD [Concomitant]
     Route: 065
  19. SALINA [Concomitant]
     Route: 065
  20. NORVASC [Concomitant]
     Route: 065
  21. ULTRAM [Concomitant]
     Route: 065
  22. NASACORT AQ [Concomitant]
     Route: 065
  23. MACROBID [Concomitant]
     Route: 065
  24. VIOXX [Suspect]
     Indication: ARTHRITIS
     Route: 048
     Dates: start: 19990706
  25. VIOXX [Suspect]
     Route: 048
  26. VIOXX [Suspect]
     Route: 048
     Dates: end: 20040705
  27. VIOXX [Suspect]
     Indication: SPINAL OPERATION
     Route: 048
     Dates: start: 19990706
  28. VIOXX [Suspect]
     Route: 048
  29. VIOXX [Suspect]
     Route: 048
     Dates: end: 20040705
  30. ALLEGRA-D 12 HOUR [Concomitant]
     Route: 065
  31. NEURONTIN [Concomitant]
     Route: 065
  32. LIDODERM [Concomitant]
     Route: 065
  33. NEXIUM [Concomitant]
     Route: 065
  34. METHOCARBAMOL [Concomitant]
     Route: 065
  35. ECOTRIN [Concomitant]
     Route: 065
  36. HYZAAR [Concomitant]
     Route: 065
  37. ZOLOFT [Concomitant]
     Route: 065
  38. PRAVACHOL [Concomitant]
     Route: 065
  39. PROTONIX [Concomitant]
     Route: 065
  40. TYLENOL (CAPLET) [Concomitant]
     Route: 065
  41. SINGULAIR [Concomitant]
     Route: 065

REACTIONS (12)
  - ABDOMINAL PAIN UPPER [None]
  - CALCINOSIS [None]
  - CEREBRAL DISORDER [None]
  - CEREBRAL ISCHAEMIA [None]
  - CEREBROVASCULAR ACCIDENT [None]
  - DYSPNOEA [None]
  - DYSPNOEA EXERTIONAL [None]
  - ESSENTIAL HYPERTENSION [None]
  - GASTROOESOPHAGEAL REFLUX DISEASE [None]
  - HYPERCHOLESTEROLAEMIA [None]
  - HYPERLIPIDAEMIA [None]
  - SPINAL DISORDER [None]
